FAERS Safety Report 7094131-8 (Version None)
Quarter: 2010Q4

REPORT INFORMATION
  Report Type: 
  Country: None (occurrence: None)
  Receive Date: 20101110
  Receipt Date: 20101028
  Transmission Date: 20110411
  Serious: Yes (Other)
  Sender: FDA-Public Use
  Company Number: FR-BRISTOL-MYERS SQUIBB COMPANY-15361140

PATIENT
  Age: 29 Year

DRUGS (10)
  1. BLINDED: APIXABAN [Suspect]
     Indication: EMBOLISM ARTERIAL
     Route: 048
     Dates: start: 20101021, end: 20101022
  2. WARFARIN SODIUM [Suspect]
     Indication: EMBOLISM ARTERIAL
     Route: 048
     Dates: start: 20101021, end: 20101021
  3. ENOXAPARIN SODIUM [Suspect]
     Indication: EMBOLISM ARTERIAL
     Route: 058
     Dates: start: 20101021, end: 20101022
  4. ABILIFY [Suspect]
  5. IXEL [Suspect]
  6. BLINDED: PLACEBO [Suspect]
     Indication: EMBOLISM ARTERIAL
     Dosage: WITH ENOX: SC  END DATE 22OCT10. WITH API: ORAL END DATE 22OCT10 WITH WAR: ORAL END DATE 21OCT10
     Dates: start: 20101021, end: 20101001
  7. PROPRANOLOL [Concomitant]
  8. LEPTICUR [Concomitant]
  9. LEVOTHYROXINE [Concomitant]
  10. NEXIUM [Concomitant]
     Dates: start: 20101021

REACTIONS (1)
  - PSYCHIATRIC DECOMPENSATION [None]
